FAERS Safety Report 18485838 (Version 2)
Quarter: 2020Q4

REPORT INFORMATION
  Report Type: Spontaneous
  Country: DE (occurrence: DE)
  Receive Date: 20201110
  Receipt Date: 20201124
  Transmission Date: 20210114
  Serious: Yes (Other)
  Sender: FDA-Public Use
  Company Number: DE-UCBSA-2020044022

PATIENT
  Sex: Female
  Weight: 70 kg

DRUGS (1)
  1. VIMPAT [Suspect]
     Active Substance: LACOSAMIDE
     Indication: EPILEPSY
     Dosage: 400 MG DAILY
     Dates: start: 201610, end: 201610

REACTIONS (3)
  - Asthenia [Recovered/Resolved with Sequelae]
  - Fatigue [Unknown]
  - Hypokinesia [Unknown]

NARRATIVE: CASE EVENT DATE: 201910
